FAERS Safety Report 8050668-6 (Version None)
Quarter: 2012Q1

REPORT INFORMATION
  Report Type: 
  Country: None (occurrence: None)
  Receive Date: 20120117
  Receipt Date: 20120117
  Transmission Date: 20120608
  Serious: Yes (Life-Threatening)
  Sender: FDA-Public Use
  Company Number: None

PATIENT
  Age: 63 Year
  Sex: Female
  Weight: 142.88 kg

DRUGS (1)
  1. AMLODIPINE BESYLATE AND BENAZEPRIL HCL [Suspect]
     Dosage: ONE CAPSULE
     Route: 048
     Dates: start: 20111210, end: 20111220

REACTIONS (5)
  - BLOOD PRESSURE INCREASED [None]
  - FEELING ABNORMAL [None]
  - EPISTAXIS [None]
  - PRODUCT SUBSTITUTION ISSUE [None]
  - HAEMORRHAGE URINARY TRACT [None]
